FAERS Safety Report 6309490-0 (Version None)
Quarter: 2009Q3

REPORT INFORMATION
  Report Type: 
  Country: None (occurrence: None)
  Receive Date: 20090814
  Receipt Date: 20090512
  Transmission Date: 20100115
  Serious: No
  Sender: FDA-Public Use
  Company Number: US-BAYER-200920616NA

PATIENT
  Sex: Female

DRUGS (1)
  1. MIRENA [Suspect]
     Indication: DRUG USE FOR UNKNOWN INDICATION
     Dosage: CONTINUOUS
     Route: 015
     Dates: start: 20090501

REACTIONS (13)
  - ABDOMINAL DISTENSION [None]
  - ABDOMINAL PAIN LOWER [None]
  - ANAEMIA [None]
  - ANGER [None]
  - DEPRESSED MOOD [None]
  - DYSPAREUNIA [None]
  - HEADACHE [None]
  - INFECTION [None]
  - MIGRAINE [None]
  - NAUSEA [None]
  - RASH PRURITIC [None]
  - UNEVALUABLE EVENT [None]
  - VAGINAL HAEMORRHAGE [None]
